FAERS Safety Report 5606288-3 (Version None)
Quarter: 2008Q1

REPORT INFORMATION
  Report Type: 
  Country: None (occurrence: None)
  Receive Date: 20080129
  Receipt Date: 20070430
  Transmission Date: 20080703
  Serious: No
  Sender: FDA-Public Use
  Company Number: A0649561A

PATIENT
  Age: 57 Year
  Sex: Male

DRUGS (2)
  1. WELLBUTRIN [Suspect]
     Route: 048
     Dates: start: 20040101
  2. NEFAZODONE HCL [Concomitant]
     Route: 065

REACTIONS (3)
  - ARTHRITIS [None]
  - MYALGIA [None]
  - OSTEOARTHRITIS [None]
